FAERS Safety Report 10778479 (Version 1)
Quarter: 2015Q1

REPORT INFORMATION
  Report Type: Spontaneous
  Country: FR (occurrence: FR)
  Receive Date: 20150210
  Receipt Date: 20150210
  Transmission Date: 20150721
  Serious: Yes (Other)
  Sender: FDA-Public Use
  Company Number: PHHY2015FR014103

PATIENT
  Age: 5 Year
  Sex: Female
  Weight: 18.4 kg

DRUGS (1)
  1. VANCOMYCIN SANDOZ [Suspect]
     Active Substance: VANCOMYCIN
     Indication: IMMUNE RECONSTITUTION INFLAMMATORY SYNDROME
     Dosage: 250 MG, QD
     Route: 042
     Dates: start: 20141205, end: 20150101

REACTIONS (3)
  - Injection site oedema [Recovered/Resolved]
  - Infusion site extravasation [Recovered/Resolved]
  - Catheter site related reaction [Recovered/Resolved]

NARRATIVE: CASE EVENT DATE: 20150101
